FAERS Safety Report 23358717 (Version 1)
Quarter: 2024Q1

REPORT INFORMATION
  Report Type: Spontaneous
  Country: PL (occurrence: PL)
  Receive Date: 20240102
  Receipt Date: 20240102
  Transmission Date: 20240410
  Serious: Yes (Other)
  Sender: FDA-Public Use
  Company Number: None

PATIENT
  Age: 64 Year
  Sex: Female
  Weight: 71 kg

DRUGS (5)
  1. PACLITAXEL [Suspect]
     Active Substance: PACLITAXEL
     Indication: Product used for unknown indication
     Dosage: DOSE: 140.66 MG?INTRAVENOUS?ROA-20045000
     Route: 042
     Dates: start: 20231027, end: 20231027
  2. ONDANSETRON [Concomitant]
     Active Substance: ONDANSETRON
     Indication: Product used for unknown indication
     Dosage: INTRAVENOUS?ROA-20045000
     Dates: start: 20231027
  3. BILASTINE [Concomitant]
     Active Substance: BILASTINE
     Indication: Product used for unknown indication
     Dosage: ORAL?ROA-20053000
     Dates: start: 20231027
  4. FAMOGAST [Concomitant]
     Indication: Product used for unknown indication
     Dosage: ORAL?ROA-20053000
     Dates: start: 20231027
  5. DEXAMETHASONE [Concomitant]
     Active Substance: DEXAMETHASONE
     Indication: Product used for unknown indication
     Dosage: INTRAVENOUS?ROA-20045000
     Dates: start: 20231027

REACTIONS (2)
  - Catarrh [Recovered/Resolved]
  - Cough [Recovered/Resolved]

NARRATIVE: CASE EVENT DATE: 20231027
